FAERS Safety Report 4350915-8 (Version None)
Quarter: 2004Q2

REPORT INFORMATION
  Report Type: 
  Country: None (occurrence: None)
  Receive Date: 20040430
  Receipt Date: 20011103
  Transmission Date: 20050107
  Serious: Yes (Death, Hospitalization)
  Sender: FDA-Public Use
  Company Number: GB-GLAXOSMITHKLINE-B0125499A

PATIENT
  Age: 59 Year
  Sex: Male
  Weight: 62 kg

DRUGS (4)
  1. ABACAVIR [Suspect]
     Indication: HIV INFECTION
     Dosage: 300MG TWICE PER DAY
     Route: 048
     Dates: start: 20001101, end: 20011001
  2. DIDANOSINE [Concomitant]
     Dosage: 400MG PER DAY
     Route: 048
     Dates: start: 20001101, end: 20011001
  3. COTRIM [Concomitant]
     Dosage: 480MG PER DAY
     Route: 065
     Dates: start: 20001101, end: 20011001
  4. KALETRA [Concomitant]
     Route: 065
     Dates: start: 20001101

REACTIONS (7)
  - ANOREXIA [None]
  - DRUG HYPERSENSITIVITY [None]
  - HEPATIC FAILURE [None]
  - PANCYTOPENIA [None]
  - PHARYNGITIS [None]
  - PYREXIA [None]
  - RENAL FAILURE [None]
